FAERS Safety Report 8919474 (Version 1)
Quarter: 2012Q4

REPORT INFORMATION
  Report Type: 
  Country: US (occurrence: US)
  Receive Date: 20121121
  Receipt Date: 20121121
  Transmission Date: 20130627
  Serious: Yes (Other)
  Sender: FDA-Public Use
  Company Number: US-BAYER-2012-119389

PATIENT
  Sex: Male

DRUGS (1)
  1. BETASERON [Suspect]
     Indication: MS
     Dosage: 0.3 mg, UNK
     Route: 058

REACTIONS (3)
  - Tardive dyskinesia [None]
  - Drooling [None]
  - Snoring [None]
